FAERS Safety Report 8409146-4 (Version None)
Quarter: 2012Q2

REPORT INFORMATION
  Report Type: 
  Country: None (occurrence: None)
  Receive Date: 20120604
  Receipt Date: 20120530
  Transmission Date: 20120825
  Serious: Yes (Other)
  Sender: FDA-Public Use
  Company Number: PHHY2012US046645

PATIENT

DRUGS (1)
  1. HEPARIN [Suspect]
     Indication: ANGIOPATHY

REACTIONS (3)
  - ANEURYSM RUPTURED [None]
  - CEREBRAL HAEMORRHAGE [None]
  - SUBARACHNOID HAEMORRHAGE [None]
